FAERS Safety Report 12613383 (Version 1)
Quarter: 2016Q3

REPORT INFORMATION
  Report Type: Spontaneous
  Country: US (occurrence: None)
  Receive Date: 20160801
  Receipt Date: 20160801
  Transmission Date: 20161109
  Serious: Yes (Life-Threatening)
  Sender: FDA-Public Use
  Company Number: None

PATIENT
  Age: 67 Year
  Sex: Female
  Weight: 88.91 kg

DRUGS (1)
  1. LITHIUM. [Suspect]
     Active Substance: LITHIUM

REACTIONS (1)
  - Renal injury [None]
